FAERS Safety Report 10307392 (Version 2)
Quarter: 2014Q3

REPORT INFORMATION
  Report Type: Spontaneous
  Country: CH (occurrence: CH)
  Receive Date: 20140716
  Receipt Date: 20140716
  Transmission Date: 20150326
  Serious: Yes (Other)
  Sender: FDA-Public Use
  Company Number: CH-AMGEN-CHESP2014034988

PATIENT
  Age: 76 Year
  Sex: Female
  Weight: 36 kg

DRUGS (4)
  1. PROLIA [Suspect]
     Active Substance: DENOSUMAB
     Indication: OSTEOPOROSIS
     Dosage: 60 MG, Q6MO
     Route: 065
     Dates: start: 20120512, end: 20130512
  2. CALCIUM + VITAMIN D                /00944201/ [Concomitant]
     Active Substance: CALCIUM\VITAMIN D
     Dosage: UNK UNK, QD
  3. SERESTA [Concomitant]
     Active Substance: OXAZEPAM
     Dosage: 18 MG, QD
  4. BENERVA [Concomitant]
     Active Substance: THIAMINE
     Dosage: UNK UNK, QD

REACTIONS (41)
  - Oedema [Unknown]
  - Anxiety [Unknown]
  - Depression [Unknown]
  - Malaise [Unknown]
  - Gastrointestinal disorder [Unknown]
  - Gastrointestinal tract irritation [Unknown]
  - Dyspepsia [Unknown]
  - Tinnitus [Unknown]
  - Feeling abnormal [Unknown]
  - Eating disorder [Unknown]
  - Pain in extremity [Unknown]
  - Weight abnormal [Unknown]
  - Skin burning sensation [Unknown]
  - Raynaud^s phenomenon [Unknown]
  - Disturbance in attention [Unknown]
  - Nerve injury [Unknown]
  - Fatigue [Unknown]
  - Asthenia [Unknown]
  - Haematoma [Unknown]
  - Malnutrition [Unknown]
  - Breast pain [Unknown]
  - Weight decreased [Unknown]
  - Decreased appetite [Unknown]
  - Burning sensation [Unknown]
  - Feeling of despair [Unknown]
  - Injection site pain [Unknown]
  - Pain [Unknown]
  - Skin irritation [Unknown]
  - Anorectal disorder [Unknown]
  - Abdominal pain [Unknown]
  - Chest pain [Unknown]
  - Stress [Unknown]
  - Nervous system disorder [Unknown]
  - Weight gain poor [Unknown]
  - Muscle disorder [Unknown]
  - Incorrect route of drug administration [Unknown]
  - Cataract [Unknown]
  - Headache [Unknown]
  - Adverse drug reaction [Unknown]
  - Abdominal discomfort [Unknown]
  - Feeling hot [Unknown]

NARRATIVE: CASE EVENT DATE: 20130512
